FAERS Safety Report 9993284 (Version 1)
Quarter: 2014Q1

REPORT INFORMATION
  Report Type: Spontaneous
  Country: FR (occurrence: FR)
  Receive Date: 20140310
  Receipt Date: 20140310
  Transmission Date: 20141002
  Serious: Yes (Other)
  Sender: FDA-Public Use
  Company Number: FR-009507513-1403FRA002740

PATIENT
  Age: 74 Year
  Sex: Male

DRUGS (1)
  1. INEGY [Suspect]
     Indication: HYPERLIPIDAEMIA
     Dosage: 0.5 DF, QD
     Route: 048
     Dates: start: 20140108, end: 20140211

REACTIONS (3)
  - Depression [Recovered/Resolved]
  - Suicidal ideation [Recovered/Resolved]
  - Sleep disorder [Recovered/Resolved]
